FAERS Safety Report 11573107 (Version 2)
Quarter: 2015Q4

REPORT INFORMATION
  Report Type: Spontaneous
  Country: US (occurrence: US)
  Receive Date: 20150929
  Receipt Date: 20151204
  Transmission Date: 20160304
  Serious: Yes (Other)
  Sender: FDA-Public Use
  Company Number: US-TEVA-597209USA

PATIENT
  Sex: Female

DRUGS (2)
  1. AVONEX [Suspect]
     Active Substance: INTERFERON BETA-1A
     Dosage: UNKNOWN DOSE STRENGTH
  2. COPAXONE [Suspect]
     Active Substance: GLATIRAMER ACETATE
     Dosage: UNKNOWN DOSE STRENGTH

REACTIONS (6)
  - Chills [Unknown]
  - Injection site pain [Unknown]
  - Injection site reaction [Unknown]
  - Motor dysfunction [Unknown]
  - Malaise [Unknown]
  - Abasia [Unknown]
